FAERS Safety Report 21645613 (Version 1)
Quarter: 2022Q4

REPORT INFORMATION
  Report Type: Spontaneous
  Country: CN (occurrence: CN)
  Receive Date: 20221126
  Receipt Date: 20221126
  Transmission Date: 20230113
  Serious: Yes (Hospitalization, Other)
  Sender: FDA-Public Use
  Company Number: CN-MLMSERVICE-20221115-3917971-1

PATIENT
  Age: 70 Year
  Sex: Male
  Weight: 62 kg

DRUGS (13)
  1. TRAMADOL HYDROCHLORIDE [Interacting]
     Active Substance: TRAMADOL HYDROCHLORIDE
     Indication: Analgesic therapy
     Route: 065
  2. ROCURONIUM [Interacting]
     Active Substance: ROCURONIUM BROMIDE
     Indication: Endotracheal intubation
     Route: 042
  3. LORNOXICAM [Interacting]
     Active Substance: LORNOXICAM
     Indication: Antiemetic supportive care
     Route: 065
  4. REMIFENTANIL [Interacting]
     Active Substance: REMIFENTANIL
     Indication: Induction and maintenance of anaesthesia
     Route: 042
  5. REMIFENTANIL [Interacting]
     Active Substance: REMIFENTANIL
     Route: 042
  6. ROPIVACAINE [Interacting]
     Active Substance: ROPIVACAINE
     Indication: Infiltration anaesthesia
     Route: 065
  7. SUFENTANIL [Interacting]
     Active Substance: SUFENTANIL
     Indication: Induction of anaesthesia
     Route: 042
  8. SEVOFLURANE [Interacting]
     Active Substance: SEVOFLURANE
     Indication: Maintenance of anaesthesia
     Route: 065
  9. PROPOFOL [Interacting]
     Active Substance: PROPOFOL
     Indication: Induction and maintenance of anaesthesia
     Route: 042
  10. PROPOFOL [Interacting]
     Active Substance: PROPOFOL
     Route: 042
  11. PROPOFOL [Interacting]
     Active Substance: PROPOFOL
     Route: 042
  12. GRANISETRON [Concomitant]
     Active Substance: GRANISETRON
     Indication: Antiemetic supportive care
     Route: 042
  13. OXYGEN [Concomitant]
     Active Substance: OXYGEN
     Indication: Product used for unknown indication
     Route: 065

REACTIONS (4)
  - Loss of consciousness [Recovered/Resolved]
  - Delayed recovery from anaesthesia [Recovered/Resolved]
  - Drug interaction [Recovered/Resolved]
  - Overdose [Recovered/Resolved]
